FAERS Safety Report 7503992-7 (Version None)
Quarter: 2011Q2

REPORT INFORMATION
  Report Type: 
  Country: None (occurrence: None)
  Receive Date: 20110525
  Receipt Date: 20110519
  Transmission Date: 20111010
  Serious: Yes (Other)
  Sender: FDA-Public Use
  Company Number: US-TEVA-282574USA

PATIENT
  Sex: Female

DRUGS (1)
  1. CLARAVIS [Suspect]

REACTIONS (2)
  - DEPRESSED MOOD [None]
  - SUICIDAL IDEATION [None]
